FAERS Safety Report 6824691-0 (Version None)
Quarter: 2010Q3

REPORT INFORMATION
  Report Type: 
  Country: None (occurrence: None)
  Receive Date: 20100708
  Receipt Date: 20061107
  Transmission Date: 20110219
  Serious: No
  Sender: FDA-Public Use
  Company Number: US-PFIZER INC-2006139896

PATIENT
  Sex: Female
  Weight: 52.16 kg

DRUGS (10)
  1. CHANTIX [Suspect]
     Indication: EX-TOBACCO USER
     Dates: start: 20061001, end: 20061031
  2. ASPIRIN [Concomitant]
  3. LOVASTATIN [Concomitant]
  4. THYROID HORMONES [Concomitant]
  5. COREG [Concomitant]
  6. PLAVIX [Concomitant]
  7. PREVACID [Concomitant]
  8. REQUIP [Concomitant]
  9. GABAPENTIN [Concomitant]
  10. ALLOPURINOL [Concomitant]

REACTIONS (1)
  - NAUSEA [None]
